FAERS Safety Report 21390726 (Version 1)
Quarter: 2022Q3

REPORT INFORMATION
  Report Type: Report from Study
  Country: CA (occurrence: CA)
  Receive Date: 20220929
  Receipt Date: 20220929
  Transmission Date: 20221027
  Serious: Yes (Other)
  Sender: FDA-Public Use
  Company Number: CA-TAKEDA-2022TUS067358

PATIENT
  Age: 40 Year
  Sex: Female

DRUGS (1)
  1. LISDEXAMFETAMINE DIMESYLATE [Suspect]
     Active Substance: LISDEXAMFETAMINE DIMESYLATE
     Indication: Fatigue
     Dosage: 40 MILLIGRAM, QD
     Route: 048

REACTIONS (4)
  - Epilepsy [Unknown]
  - Intentional product misuse [Unknown]
  - Somnolence [Unknown]
  - Off label use [Unknown]
